FAERS Safety Report 6640287-8 (Version None)
Quarter: 2010Q1

REPORT INFORMATION
  Report Type: 
  Country: None (occurrence: None)
  Receive Date: 20100318
  Receipt Date: 20100310
  Transmission Date: 20100710
  Serious: Yes (Hospitalization)
  Sender: FDA-Public Use
  Company Number: BR-ROCHE-690702

PATIENT
  Sex: Female
  Weight: 60 kg

DRUGS (3)
  1. ROACUTAN [Suspect]
     Indication: ACNE
     Route: 048
     Dates: start: 20080101, end: 20080101
  2. ROACUTAN [Suspect]
     Route: 048
     Dates: start: 20090701, end: 20091201
  3. ROACUTAN [Suspect]
     Route: 048
     Dates: start: 20100101

REACTIONS (2)
  - LIP DRY [None]
  - PERINEAL OPERATION [None]
